FAERS Safety Report 20975251 (Version 2)
Quarter: 2022Q3

REPORT INFORMATION
  Report Type: Spontaneous
  Country: FR (occurrence: FR)
  Receive Date: 20220617
  Receipt Date: 20220701
  Transmission Date: 20221027
  Serious: Yes (Hospitalization)
  Sender: FDA-Public Use
  Company Number: None

PATIENT
  Age: 23 Year
  Sex: Male
  Weight: 70 kg

DRUGS (2)
  1. ECONAZOLE [Suspect]
     Active Substance: ECONAZOLE
     Indication: Rash pruritic
     Dosage: 2 DOSAGE FORM, QD
     Route: 003
     Dates: start: 20220517, end: 20220518
  2. HYDROXYZINE [Suspect]
     Active Substance: HYDROXYZINE HYDROCHLORIDE
     Indication: Rash pruritic
     Dosage: 1 DOSAGE FORM, QD
     Route: 048
     Dates: start: 20220517, end: 20220518

REACTIONS (1)
  - Acute generalised exanthematous pustulosis [Recovering/Resolving]

NARRATIVE: CASE EVENT DATE: 20220519
